FAERS Safety Report 4725900-4 (Version None)
Quarter: 2005Q3

REPORT INFORMATION
  Report Type: 
  Country: None (occurrence: None)
  Receive Date: 20050722
  Receipt Date: 20050722
  Transmission Date: 20060218
  Serious: Yes (Other)
  Sender: FDA-Public Use
  Company Number: None

PATIENT
  Age: 51 Year
  Sex: Female
  Weight: 83 kg

DRUGS (12)
  1. TOPROL-XL [Suspect]
     Indication: CARDIOMYOPATHY
     Dosage: 100 MG PO DAILY
     Route: 048
     Dates: start: 20050314
  2. ADDERALL 30 [Concomitant]
  3. ADVAIR DISKUS 50/500 [Concomitant]
  4. ALDACTONE [Concomitant]
  5. PLAVIX [Concomitant]
  6. RISPERDAL [Concomitant]
  7. UNIPHYLL [Concomitant]
  8. DEMADEX [Concomitant]
  9. DIGOXIN [Concomitant]
  10. KLONPIN [Concomitant]
  11. LISINOPRIL [Concomitant]
  12. ASPIRIN [Concomitant]

REACTIONS (1)
  - DIARRHOEA [None]
